FAERS Safety Report 15767834 (Version 2)
Quarter: 2019Q1

REPORT INFORMATION
  Report Type: Report from Study
  Country: US (occurrence: US)
  Receive Date: 20181227
  Receipt Date: 20190111
  Transmission Date: 20190417
  Serious: Yes (Hospitalization, Other)
  Sender: FDA-Public Use
  Company Number: US-JAZZ-2018-US-018308

PATIENT
  Sex: Female

DRUGS (48)
  1. LEVOTHYROXINE. [Concomitant]
     Active Substance: LEVOTHYROXINE
  2. CARBAMAZEPINE. [Concomitant]
     Active Substance: CARBAMAZEPINE
  3. XOLAIR [Concomitant]
     Active Substance: OMALIZUMAB
  4. XOPENEX HFA [Concomitant]
     Active Substance: LEVALBUTEROL TARTRATE
  5. OXYCODONE HYDROCHLORIDE. [Concomitant]
     Active Substance: OXYCODONE HYDROCHLORIDE
  6. CLONAZEPAM. [Concomitant]
     Active Substance: CLONAZEPAM
  7. HYDROCHLOROTHIAZIDE. [Concomitant]
     Active Substance: HYDROCHLOROTHIAZIDE
  8. CYMBALTA [Concomitant]
     Active Substance: DULOXETINE HYDROCHLORIDE
  9. SINGULAIR [Concomitant]
     Active Substance: MONTELUKAST SODIUM
  10. ARAVA [Concomitant]
     Active Substance: LEFLUNOMIDE
  11. CALCIUM ASCORBATE [Concomitant]
     Active Substance: CALCIUM ASCORBATE
  12. ONDANSETRON [Concomitant]
     Active Substance: ONDANSETRON
  13. PANTOPRAZOLE SODIUM. [Concomitant]
     Active Substance: PANTOPRAZOLE SODIUM
  14. MODAFINIL. [Concomitant]
     Active Substance: MODAFINIL
  15. STADOL [Concomitant]
     Active Substance: BUTORPHANOL TARTRATE
  16. XYREM [Suspect]
     Active Substance: SODIUM OXYBATE
     Dosage: 4.5 G, BID
     Route: 048
     Dates: start: 201012
  17. FOLIC ACID. [Concomitant]
     Active Substance: FOLIC ACID
  18. ADDERALL [Concomitant]
     Active Substance: AMPHETAMINE ASPARTATE\AMPHETAMINE SULFATE\DEXTROAMPHETAMINE SACCHARATE\DEXTROAMPHETAMINE SULFATE
  19. METHENAMINE [Concomitant]
     Active Substance: METHENAMINE
  20. DEXEDRINE [Concomitant]
     Active Substance: DEXTROAMPHETAMINE SULFATE
  21. ERGOCALCIFEROL. [Concomitant]
     Active Substance: ERGOCALCIFEROL
  22. XYREM [Suspect]
     Active Substance: SODIUM OXYBATE
     Indication: NARCOLEPSY
     Dosage: 2.25 G, BID
     Route: 048
     Dates: start: 201011, end: 201012
  23. XYREM [Suspect]
     Active Substance: SODIUM OXYBATE
     Indication: CATAPLEXY
     Dosage: DOSE ADJUSTMENT
     Route: 048
     Dates: start: 201012, end: 201012
  24. ACICLOVIR [Concomitant]
     Active Substance: ACYCLOVIR
  25. EFFEXOR [Concomitant]
     Active Substance: VENLAFAXINE HYDROCHLORIDE
  26. NORETHISTERONE [Concomitant]
     Active Substance: NORETHINDRONE
  27. SULINDAC. [Concomitant]
     Active Substance: SULINDAC
  28. TOPROL XL [Concomitant]
     Active Substance: METOPROLOL SUCCINATE
  29. HYDROCODONE BITARTRATE AND ACETAMINOPHEN [Concomitant]
     Active Substance: ACETAMINOPHEN\HYDROCODONE BITARTRATE
  30. METHYLPHENIDATE. [Concomitant]
     Active Substance: METHYLPHENIDATE
  31. REBIF [Concomitant]
     Active Substance: INTERFERON BETA-1A
  32. AUBAGIO [Concomitant]
     Active Substance: TERIFLUNOMIDE
  33. ADVAIR HFA [Concomitant]
     Active Substance: FLUTICASONE PROPIONATE\SALMETEROL XINAFOATE
  34. FAMCICLOVIR. [Concomitant]
     Active Substance: FAMCICLOVIR
  35. MAGNESIUM CHELATE [Concomitant]
     Active Substance: MAGNESIUM
  36. HORIZANT [Concomitant]
     Active Substance: GABAPENTIN ENACARBIL
  37. METHOTREXATE. [Concomitant]
     Active Substance: METHOTREXATE
  38. BACLOFEN. [Concomitant]
     Active Substance: BACLOFEN
  39. ESTRADIOL. [Concomitant]
     Active Substance: ESTRADIOL
  40. GABAPENTIN. [Concomitant]
     Active Substance: GABAPENTIN
  41. DHEA [Concomitant]
     Active Substance: PRASTERONE
  42. ENTOCORT [Concomitant]
     Active Substance: BUDESONIDE
  43. SYNTHROID [Concomitant]
     Active Substance: LEVOTHYROXINE SODIUM
  44. ZOLOFT [Concomitant]
     Active Substance: SERTRALINE HYDROCHLORIDE
  45. CALCIUM AND VIT D [Concomitant]
     Active Substance: CALCIUM\VITAMIN D
  46. PENTASA [Concomitant]
     Active Substance: MESALAMINE
  47. FISH OIL CONCENTRATE [Concomitant]
     Active Substance: FISH OIL
  48. RITALIN [Concomitant]
     Active Substance: METHYLPHENIDATE HYDROCHLORIDE

REACTIONS (2)
  - Blood iron decreased [Unknown]
  - Pericarditis [Unknown]
